FAERS Safety Report 16929352 (Version 1)
Quarter: 2019Q4

REPORT INFORMATION
  Report Type: Spontaneous
  Country: DE (occurrence: DE)
  Receive Date: 20191017
  Receipt Date: 20191017
  Transmission Date: 20200122
  Serious: Yes (Hospitalization, Other)
  Sender: FDA-Public Use
  Company Number: DE-TEVA-2019-DE-1121651

PATIENT
  Age: 71 Year
  Sex: Male

DRUGS (12)
  1. LACOSAMIDE. [Suspect]
     Active Substance: LACOSAMIDE
     Indication: EPILEPSY
     Route: 065
  2. ESLICARBAZEPINE [Interacting]
     Active Substance: ESLICARBAZEPINE
     Indication: EPILEPSY
     Route: 065
  3. PERAMPANEL [Interacting]
     Active Substance: PERAMPANEL
     Indication: EPILEPSY
     Dosage: 10 MILLIGRAM DAILY;
     Route: 065
  4. ZONISAMIDE. [Concomitant]
     Active Substance: ZONISAMIDE
     Indication: EPILEPSY
     Dosage: 200 MILLIGRAM DAILY;
     Route: 065
  5. LEVETIRACETAM. [Suspect]
     Active Substance: LEVETIRACETAM
     Indication: EPILEPSY
     Route: 065
  6. ENOXAPARIN [Concomitant]
     Active Substance: ENOXAPARIN
     Indication: THROMBOSIS PROPHYLAXIS
     Route: 065
  7. LAMOTRIGINE. [Suspect]
     Active Substance: LAMOTRIGINE
     Indication: EPILEPSY
     Route: 065
  8. ESLICARBAZEPINE [Interacting]
     Active Substance: ESLICARBAZEPINE
     Dosage: TITRATED TO 1200 MG WITHIN 7 DAYS
     Route: 065
  9. PERAMPANEL [Interacting]
     Active Substance: PERAMPANEL
     Dosage: 8 MILLIGRAM DAILY;
     Route: 065
  10. RISPERIDONE. [Concomitant]
     Active Substance: RISPERIDONE
     Indication: APHASIA
     Dosage: 2.5 MILLIGRAM DAILY;
     Route: 065
  11. RISPERIDONE. [Concomitant]
     Active Substance: RISPERIDONE
     Indication: ABNORMAL BEHAVIOUR
  12. VALPROIC ACID. [Suspect]
     Active Substance: VALPROIC ACID
     Indication: EPILEPSY
     Route: 065

REACTIONS (4)
  - Drug interaction [Recovering/Resolving]
  - Type IV hypersensitivity reaction [Unknown]
  - Drug ineffective [Unknown]
  - Drug reaction with eosinophilia and systemic symptoms [Recovering/Resolving]
